FAERS Safety Report 8102736-8 (Version None)
Quarter: 2012Q1

REPORT INFORMATION
  Report Type: 
  Country: None (occurrence: None)
  Receive Date: 20120201
  Receipt Date: 20120123
  Transmission Date: 20120608
  Serious: Yes (Hospitalization)
  Sender: FDA-Public Use
  Company Number: US-BAYER-2011-061802

PATIENT
  Age: 24 Year
  Sex: Female
  Weight: 72.562 kg

DRUGS (1)
  1. YAZ [Suspect]
     Dosage: UNK
     Route: 048
     Dates: start: 20070401, end: 20080701

REACTIONS (16)
  - DYSPEPSIA [None]
  - ABDOMINAL DISTENSION [None]
  - ANXIETY [None]
  - STRESS [None]
  - PAIN [None]
  - DEPRESSION [None]
  - CHOLELITHIASIS [None]
  - ABDOMINAL PAIN [None]
  - DIARRHOEA [None]
  - ANHEDONIA [None]
  - FLATULENCE [None]
  - BILIARY COLIC [None]
  - CONSTIPATION [None]
  - FRUSTRATION [None]
  - INJURY [None]
  - EMOTIONAL DISTRESS [None]
